FAERS Safety Report 17590106 (Version 1)
Quarter: 2020Q1

REPORT INFORMATION
  Report Type: Spontaneous
  Country: CH (occurrence: CH)
  Receive Date: 20200327
  Receipt Date: 20200327
  Transmission Date: 20200409
  Serious: Yes (Other)
  Sender: FDA-Public Use
  Company Number: CH-TEVA-2020-CH-1211165

PATIENT
  Age: 71 Year
  Sex: Male

DRUGS (1)
  1. DOXYCYCLINE MEPHA [Suspect]
     Active Substance: DOXYCYCLINE
     Indication: AMYLOIDOSIS
     Dates: start: 201601, end: 201805

REACTIONS (3)
  - Cardiac failure chronic [Unknown]
  - Hepatic enzyme increased [Unknown]
  - Disease progression [Unknown]

NARRATIVE: CASE EVENT DATE: 201805
